FAERS Safety Report 24238942 (Version 1)
Quarter: 2024Q3

REPORT INFORMATION
  Report Type: Report from Study
  Country: US (occurrence: None)
  Receive Date: 20240822
  Receipt Date: 20240822
  Transmission Date: 20241017
  Serious: Yes (Other)
  Sender: ASTRAZENECA
  Company Number: 2024A186382

PATIENT
  Sex: Male

DRUGS (1)
  1. TAGRISSO [Suspect]
     Active Substance: OSIMERTINIB
     Indication: Lung carcinoma cell type unspecified stage 0
     Route: 048
     Dates: start: 202304

REACTIONS (12)
  - Angina pectoris [Unknown]
  - Dyspnoea [Unknown]
  - Fatigue [Unknown]
  - Constipation [Unknown]
  - Abdominal pain [Unknown]
  - Hyperchlorhydria [Unknown]
  - Gastrointestinal disorder [Unknown]
  - Heart rate abnormal [Unknown]
  - Chest pain [Unknown]
  - Asthenia [Unknown]
  - Gait disturbance [Unknown]
  - Decreased activity [Unknown]
